FAERS Safety Report 6700115-9 (Version None)
Quarter: 2010Q2

REPORT INFORMATION
  Report Type: 
  Country: None (occurrence: None)
  Receive Date: 20100427
  Receipt Date: 20100427
  Transmission Date: 20101027
  Serious: Yes (Hospitalization, Other)
  Sender: FDA-Public Use
  Company Number: None

PATIENT
  Age: 32 Year
  Sex: Female
  Weight: 88.905 kg

DRUGS (1)
  1. TOPIRAMATE [Suspect]
     Indication: HEADACHE
     Dosage: 50MG 1 X DAY PO
     Route: 048
     Dates: start: 20100319, end: 20100415

REACTIONS (10)
  - AGITATION [None]
  - ANGER [None]
  - BRADYKINESIA [None]
  - DEPRESSION [None]
  - DYSARTHRIA [None]
  - HEADACHE [None]
  - IMPAIRED WORK ABILITY [None]
  - PANIC ATTACK [None]
  - SPEECH DISORDER [None]
  - SUICIDAL IDEATION [None]
